FAERS Safety Report 4797014-9 (Version None)
Quarter: 2005Q4

REPORT INFORMATION
  Report Type: 
  Country: None (occurrence: None)
  Receive Date: 20051011
  Receipt Date: 20051011
  Transmission Date: 20060501
  Serious: Yes (Life-Threatening, Hospitalization)
  Sender: FDA-Public Use
  Company Number: None

PATIENT
  Age: 14 Year
  Sex: Male
  Weight: 63.5036 kg

DRUGS (2)
  1. STRATTERA [Suspect]
     Indication: ASPERGER'S DISORDER
     Dosage: AS PRESCRIBED
     Dates: start: 20030415, end: 20030506
  2. STRATTERA [Suspect]
     Indication: ATTENTION DEFICIT/HYPERACTIVITY DISORDER
     Dosage: AS PRESCRIBED
     Dates: start: 20030415, end: 20030506

REACTIONS (5)
  - ANGER [None]
  - DEPRESSION [None]
  - INJURY ASPHYXIATION [None]
  - MOOD ALTERED [None]
  - SUICIDE ATTEMPT [None]
